FAERS Safety Report 4949257-9 (Version None)
Quarter: 2006Q1

REPORT INFORMATION
  Report Type: 
  Country: None (occurrence: None)
  Receive Date: 20060316
  Receipt Date: 20060307
  Transmission Date: 20060701
  Serious: Yes (Other)
  Sender: FDA-Public Use
  Company Number: 2006001732

PATIENT
  Age: 37 Year
  Sex: Male

DRUGS (3)
  1. BEXTRA [Suspect]
     Indication: JOINT INJURY
     Dosage: 10 MG, 1 D
     Dates: start: 20050706, end: 20050711
  2. CELEBREX [Suspect]
     Indication: JOINT INJURY
     Dosage: 200 MG (1 D)
     Dates: start: 20050706, end: 20050711
  3. NAPROXEN [Concomitant]

REACTIONS (20)
  - ABNORMAL SENSATION IN EYE [None]
  - ALOPECIA [None]
  - ARTHRALGIA [None]
  - CONTUSION [None]
  - DEPRESSION [None]
  - DYSPEPSIA [None]
  - EXCORIATION [None]
  - FEMUR FRACTURE [None]
  - GASTROOESOPHAGEAL REFLUX DISEASE [None]
  - HEADACHE [None]
  - HYPOAESTHESIA [None]
  - INSOMNIA [None]
  - JOINT SPRAIN [None]
  - LACERATION [None]
  - MUSCLE RUPTURE [None]
  - PRURITUS [None]
  - RASH [None]
  - RESPIRATORY DISORDER [None]
  - SINUSITIS [None]
  - VISUAL DISTURBANCE [None]
